FAERS Safety Report 7327077-8 (Version None)
Quarter: 2011Q1

REPORT INFORMATION
  Report Type: 
  Country: None (occurrence: None)
  Receive Date: 20110302
  Receipt Date: 20110226
  Transmission Date: 20110831
  Serious: Yes (Other)
  Sender: FDA-Public Use
  Company Number: CA-ABBOTT-11P-028-0707747-00

PATIENT
  Sex: Female
  Weight: 55.388 kg

DRUGS (4)
  1. AVAPRO [Concomitant]
     Indication: HYPERTENSION
     Route: 048
     Dates: start: 20090101
  2. UNKNOWN MEDICATION [Concomitant]
     Indication: HYPERTENSION
     Route: 048
     Dates: start: 20090101
  3. UNKNOWN MEDICATION [Concomitant]
     Indication: DIURETIC THERAPY
     Route: 048
     Dates: start: 20090101
  4. HUMIRA [Suspect]
     Indication: RHEUMATOID ARTHRITIS
     Route: 058
     Dates: start: 20101105

REACTIONS (5)
  - POST PROCEDURAL COMPLICATION [None]
  - WEIGHT DECREASED [None]
  - FOOT OPERATION [None]
  - DISEASE COMPLICATION [None]
  - PROCEDURAL PAIN [None]
